FAERS Safety Report 13211301 (Version 2)
Quarter: 2017Q1

REPORT INFORMATION
  Report Type: Spontaneous
  Country: US (occurrence: US)
  Receive Date: 20170210
  Receipt Date: 20170228
  Transmission Date: 20170428
  Serious: No
  Sender: FDA-Public Use
  Company Number: US-PFIZER INC-2017060780

PATIENT
  Age: 39 Year
  Sex: Male
  Weight: 93 kg

DRUGS (24)
  1. LYRICA [Suspect]
     Active Substance: PREGABALIN
     Indication: PAIN
     Dosage: 100 MG, UNK (100 MG X 2)
  2. ELMIRON [Concomitant]
     Active Substance: PENTOSAN POLYSULFATE SODIUM
     Dosage: 100 MG, UNK
  3. FINASTERIDE. [Concomitant]
     Active Substance: FINASTERIDE
     Dosage: 25 MG, 1X/DAY (IN THE MORNING)
  4. MIDAMOR [Concomitant]
     Active Substance: AMILORIDE HYDROCHLORIDE
     Dosage: 5 MG, UNK
  5. NORCO [Concomitant]
     Active Substance: ACETAMINOPHEN\HYDROCODONE BITARTRATE
     Dosage: UNK, [HYDROCODONE BITARTRATE : 10MG]/[PARACETAMOL: 325 MG]
  6. HYDROXYZINE HCL [Concomitant]
     Active Substance: HYDROXYZINE HYDROCHLORIDE
     Dosage: UNK
     Route: 048
  7. DEPADE [Concomitant]
     Dosage: 50 MG, UNK
  8. TEGRETOL [Concomitant]
     Active Substance: CARBAMAZEPINE
     Dosage: 400 MG, 2X/DAY ( (400 MG X 4 (2 PILLS IN MORNING, 2 PILLS AT NIGHT)
  9. TRAZODONE [Concomitant]
     Active Substance: TRAZODONE HYDROCHLORIDE
     Indication: SLEEP DISORDER
     Dosage: 200 MG, 1X/DAY (AT NIGHT)
  10. LITHIUM. [Concomitant]
     Active Substance: LITHIUM
     Dosage: 300 MG, UNK
  11. VALIUM [Concomitant]
     Active Substance: DIAZEPAM
     Dosage: 5 MG, UNK (5 MG PILLS BROKEN UP, RARELY TAKEN)
  12. DIAZEPAM. [Concomitant]
     Active Substance: DIAZEPAM
     Dosage: UNK
     Route: 048
  13. LOMOTIL [Concomitant]
     Active Substance: ATROPINE SULFATE\DIPHENOXYLATE HYDROCHLORIDE
     Dosage: UNK, [DIPHENOXYLATE HYDROCHLORIDE: 2.5 MG]/[ATROPINE: 0.025 MG]
  14. PROSCAR [Concomitant]
     Active Substance: FINASTERIDE
     Dosage: 5 MG, UNK
  15. PROBIOTIC [Concomitant]
     Active Substance: PROBIOTICS NOS
     Dosage: UNK UNK, DAILY
     Route: 048
  16. LYRICA [Suspect]
     Active Substance: PREGABALIN
     Indication: FIBROMYALGIA
     Dosage: 150 MG, 3X/DAY
     Route: 048
     Dates: start: 20170113
  17. NUCYNTA [Concomitant]
     Active Substance: TAPENTADOL HYDROCHLORIDE
     Indication: PAIN
     Dosage: 75 MG, 3X/DAY
  18. LYRICA [Suspect]
     Active Substance: PREGABALIN
     Indication: POST LAMINECTOMY SYNDROME
     Dosage: 100 MG, 3X/DAY
  19. XANAX [Concomitant]
     Active Substance: ALPRAZOLAM
     Dosage: 2 MG, 1X/DAY (AT NIGHT)
  20. FLECTOR [Concomitant]
     Active Substance: DICLOFENAC EPOLAMINE
     Dosage: 1.3 %, UNK
  21. LATUDA [Concomitant]
     Active Substance: LURASIDONE HYDROCHLORIDE
     Dosage: 40 MG, UNK
  22. SAPHRIS [Concomitant]
     Active Substance: ASENAPINE MALEATE
     Dosage: 5 MG, UNK
     Route: 060
  23. LITHIUM. [Concomitant]
     Active Substance: LITHIUM
     Dosage: 600 MG, 2X/DAY (600 MG IN THE MORNING, 600 AT NIGHT)
  24. METFORMIN [Concomitant]
     Active Substance: METFORMIN HYDROCHLORIDE
     Dosage: 500 MG, UNK (500MG X 2)

REACTIONS (2)
  - Withdrawal syndrome [Recovering/Resolving]
  - Tremor [Recovering/Resolving]
